FAERS Safety Report 4927995-1 (Version None)
Quarter: 2006Q1

REPORT INFORMATION
  Report Type: 
  Country: None (occurrence: None)
  Receive Date: 20060127
  Receipt Date: 20051212
  Transmission Date: 20060701
  Serious: Yes (Other)
  Sender: FDA-Public Use
  Company Number: 2005168180

PATIENT
  Sex: Female

DRUGS (4)
  1. LYRICA [Suspect]
     Indication: POST HERPETIC NEURALGIA
     Dosage: 600 MG (300 MG, 2 IN 1 D)
     Dates: start: 20051101, end: 20050101
  2. NEURONTIN [Concomitant]
  3. INSULIN (INSULIN) [Concomitant]
  4. LORAZEPAM [Concomitant]

REACTIONS (2)
  - DRUG INEFFECTIVE [None]
  - PAIN [None]
